FAERS Safety Report 7752747-7 (Version None)
Quarter: 2011Q3

REPORT INFORMATION
  Report Type: 
  Country: None (occurrence: None)
  Receive Date: 20110915
  Receipt Date: 20110908
  Transmission Date: 20111222
  Serious: Yes (Death, Other)
  Sender: FDA-Public Use
  Company Number: JP-ROCHE-801735

PATIENT

DRUGS (5)
  1. EFUDEX [Suspect]
     Indication: COLORECTAL CANCER
     Route: 042
  2. OXALIPLATIN [Suspect]
     Indication: COLORECTAL CANCER
     Route: 065
  3. LEUCOVORIN CALCIUM [Suspect]
     Indication: COLORECTAL CANCER
     Route: 065
  4. IRINOTECAN HCL [Suspect]
     Indication: COLORECTAL CANCER
     Route: 065
  5. BEVACIZUMAB [Suspect]
     Indication: COLORECTAL CANCER
     Route: 065

REACTIONS (6)
  - NEUROPATHY PERIPHERAL [None]
  - NAUSEA [None]
  - EMBOLISM VENOUS [None]
  - VOMITING [None]
  - SEPSIS [None]
  - DEVICE RELATED INFECTION [None]
